FAERS Safety Report 11973115 (Version 2)
Quarter: 2018Q2

REPORT INFORMATION
  Report Type: Spontaneous
  Country: US (occurrence: US)
  Receive Date: 20160128
  Receipt Date: 20180503
  Transmission Date: 20180711
  Serious: No
  Sender: FDA-Public Use
  Company Number: ALCN2016US000761

PATIENT
  Sex: Female

DRUGS (1)
  1. ICAPS LZ [Suspect]
     Active Substance: VITAMINS
     Indication: PRODUCT USED FOR UNKNOWN INDICATION
     Dosage: UNK
     Route: 048
     Dates: start: 2014

REACTIONS (1)
  - Yellow skin [Recovered/Resolved]

NARRATIVE: CASE EVENT DATE: 201506
